FAERS Safety Report 6202498-5 (Version None)
Quarter: 2009Q2

REPORT INFORMATION
  Report Type: 
  Country: None (occurrence: None)
  Receive Date: 20090526
  Receipt Date: 20080429
  Transmission Date: 20091009
  Serious: No
  Sender: FDA-Public Use
  Company Number: A0725625A

PATIENT
  Age: 64 Year
  Sex: Female

DRUGS (2)
  1. LANOXICAPS [Suspect]
     Route: 048
     Dates: start: 19800101
  2. SYNTHROID [Concomitant]

REACTIONS (3)
  - ANOREXIA [None]
  - FATIGUE [None]
  - HEADACHE [None]
